FAERS Safety Report 21862699 (Version 2)
Quarter: 2023Q1

REPORT INFORMATION
  Report Type: Report from Study
  Country: MX (occurrence: MX)
  Receive Date: 20230114
  Receipt Date: 20230203
  Transmission Date: 20230417
  Serious: Yes (Death, Hospitalization, Other)
  Sender: FDA-Public Use
  Company Number: MX-002147023-NVSC2023MX008550

PATIENT
  Age: 87 Year
  Sex: Male

DRUGS (2)
  1. EXELON [Suspect]
     Active Substance: RIVASTIGMINE TARTRATE
     Indication: Mood altered
     Dosage: 1 DOSAGE FORM, QD (4.6 MG, QD PATCH 5 (CM2)))
     Route: 062
     Dates: start: 2020
  2. EXELON [Suspect]
     Active Substance: RIVASTIGMINE TARTRATE
     Indication: Aggression
     Dosage: 1 DOSAGE FORM, QD 4.6 MG, QD PATCH 5 (CM2))
     Route: 062
     Dates: start: 20210518

REACTIONS (13)
  - Myocardial infarction [Fatal]
  - Hip fracture [Recovered/Resolved]
  - Pulmonary oedema [Unknown]
  - Cardiomegaly [Unknown]
  - Pneumonia [Not Recovered/Not Resolved]
  - Muscle rigidity [Unknown]
  - Dyspnoea [Unknown]
  - Productive cough [Unknown]
  - Fall [Recovered/Resolved]
  - General physical health deterioration [Unknown]
  - Gait disturbance [Not Recovered/Not Resolved]
  - Cough [Not Recovered/Not Resolved]
  - Off label use [Not Recovered/Not Resolved]

NARRATIVE: CASE EVENT DATE: 20221220
